FAERS Safety Report 9645437 (Version 2)
Quarter: 2013Q4

REPORT INFORMATION
  Report Type: Spontaneous
  Country: TR (occurrence: TR)
  Receive Date: 20131025
  Receipt Date: 20131111
  Transmission Date: 20140711
  Serious: Yes (Hospitalization, Other)
  Sender: FDA-Public Use
  Company Number: TR-TEVA-438793ISR

PATIENT
  Age: 78 Year
  Sex: Female

DRUGS (3)
  1. SERTRALINE [Suspect]
     Indication: BIPOLAR DISORDER
     Dosage: 50 MILLIGRAM DAILY;
     Route: 065
  2. LITHIUM [Suspect]
     Indication: BIPOLAR DISORDER
     Dosage: 900 MILLIGRAM DAILY;
     Route: 065
  3. OLANZAPINE [Suspect]
     Indication: BIPOLAR DISORDER
     Dosage: 20 MILLIGRAM DAILY;
     Route: 065

REACTIONS (4)
  - Toxicity to various agents [Recovering/Resolving]
  - Neurotoxicity [Recovering/Resolving]
  - Partial seizures [Unknown]
  - Acute prerenal failure [Unknown]
